FAERS Safety Report 12523167 (Version 2)
Quarter: 2016Q3

REPORT INFORMATION
  Report Type: Spontaneous
  Country: US (occurrence: US)
  Receive Date: 20160701
  Receipt Date: 20160705
  Transmission Date: 20161109
  Serious: Yes (Other)
  Sender: FDA-Public Use
  Company Number: US-JNJFOC-20160620575

PATIENT
  Sex: Female
  Weight: 106.6 kg

DRUGS (12)
  1. ELDERBERRY [Concomitant]
     Active Substance: HERBALS
     Indication: INFLUENZA
     Route: 065
  2. MAGNESIUM CITRATE. [Concomitant]
     Active Substance: MAGNESIUM CITRATE
     Indication: PRODUCT USED FOR UNKNOWN INDICATION
     Dosage: DAILY
     Route: 065
  3. TYLENOL [Suspect]
     Active Substance: ACETAMINOPHEN
     Indication: PRODUCT USED FOR UNKNOWN INDICATION
     Route: 048
     Dates: start: 2016, end: 2016
  4. MONASCUS PURPUREUS [Concomitant]
     Active Substance: RED YEAST
     Indication: PRODUCT USED FOR UNKNOWN INDICATION
     Dosage: DAILY
     Route: 065
  5. VITAMIN B6 [Concomitant]
     Active Substance: PYRIDOXINE HYDROCHLORIDE
     Indication: PRODUCT USED FOR UNKNOWN INDICATION
     Route: 065
     Dates: start: 201605
  6. OCUVIT [Concomitant]
     Indication: EYE DISORDER
     Route: 065
  7. GLUCOSAMINE AND CHONDROITIN SULFATE [Concomitant]
     Indication: PRODUCT USED FOR UNKNOWN INDICATION
     Route: 065
  8. GARLIC. [Concomitant]
     Active Substance: GARLIC
     Indication: PRODUCT USED FOR UNKNOWN INDICATION
     Dosage: DAILY
     Route: 065
  9. OLIVE LEAVES EXTRACT [Concomitant]
     Indication: PRODUCT USED FOR UNKNOWN INDICATION
     Route: 065
  10. BORAGE OIL [Concomitant]
     Active Substance: BORAGE OIL
     Indication: NUTRITIONAL SUPPLEMENTATION
     Route: 065
  11. TYLENOL [Suspect]
     Active Substance: ACETAMINOPHEN
     Route: 048
  12. ELDERBERRY [Concomitant]
     Active Substance: HERBALS
     Indication: POOR DENTAL CONDITION
     Route: 065

REACTIONS (2)
  - Pulmonary embolism [Unknown]
  - Hypokinesia [Unknown]

NARRATIVE: CASE EVENT DATE: 2016
